FAERS Safety Report 8036985-4 (Version None)
Quarter: 2012Q1

REPORT INFORMATION
  Report Type: 
  Country: None (occurrence: None)
  Receive Date: 20120111
  Receipt Date: 20120109
  Transmission Date: 20120608
  Serious: No
  Sender: FDA-Public Use
  Company Number: US-PFIZER INC-2012005929

PATIENT
  Sex: Female
  Weight: 93.42 kg

DRUGS (4)
  1. PERCOCET [Concomitant]
     Indication: PAIN
     Dosage: UNK
  2. SAVELLA [Concomitant]
     Indication: PAIN
     Dosage: UNK
  3. PREMARIN [Suspect]
     Indication: FLUSHING
     Dosage: 1.25 MG, DAILY
     Route: 048
     Dates: end: 20111201
  4. DYAZIDE [Concomitant]
     Indication: HYPERTENSION
     Dosage: 25/37.5 MG, 2X/DAY

REACTIONS (3)
  - FEELING ABNORMAL [None]
  - SLEEP DISORDER [None]
  - HYPERHIDROSIS [None]
